FAERS Safety Report 7105396-8 (Version None)
Quarter: 2010Q4

REPORT INFORMATION
  Report Type: 
  Country: None (occurrence: None)
  Receive Date: 20101116
  Receipt Date: 20101110
  Transmission Date: 20110411
  Serious: Yes (Other)
  Sender: FDA-Public Use
  Company Number: US-BAYER-201023554BCC

PATIENT
  Age: 61 Year
  Sex: Male
  Weight: 82 kg

DRUGS (4)
  1. ASPIRIN [Suspect]
     Indication: PRODUCT USED FOR UNKNOWN INDICATION
     Dosage: UNIT DOSE: 325 MG
     Route: 048
  2. ATENOLOL [Concomitant]
  3. PREDNISONE [Concomitant]
  4. CRESTOR [Concomitant]

REACTIONS (1)
  - CORONARY ARTERIAL STENT INSERTION [None]
